FAERS Safety Report 10157915 (Version 9)
Quarter: 2017Q3

REPORT INFORMATION
  Report Type: Spontaneous
  Country: US (occurrence: US)
  Receive Date: 20140507
  Receipt Date: 20170731
  Transmission Date: 20171127
  Serious: Yes (Other)
  Sender: FDA-Public Use
  Company Number: US-GLAXOSMITHKLINE-A0777580A

PATIENT
  Age: 84 Year
  Sex: Female

DRUGS (20)
  1. ADVAIR DISKUS [Suspect]
     Active Substance: FLUTICASONE PROPIONATE\SALMETEROL XINAFOATE
     Indication: ASTHMA
     Dosage: UNK
     Dates: start: 2006
  2. SINGULAIR [Concomitant]
     Active Substance: MONTELUKAST SODIUM
  3. ZOCOR [Concomitant]
     Active Substance: SIMVASTATIN
  4. CALCIUM + D [Concomitant]
     Active Substance: CALCIUM\VITAMIN D
  5. KLOR-CON [Concomitant]
     Active Substance: POTASSIUM CHLORIDE
  6. HYDROCHLOROTHIAZIDE. [Concomitant]
     Active Substance: HYDROCHLOROTHIAZIDE
  7. NYSTATIN. [Concomitant]
     Active Substance: NYSTATIN
  8. ACIDOPHILUS [Concomitant]
     Active Substance: LACTOBACILLUS ACIDOPHILUS
  9. ALBUTEROL. [Concomitant]
     Active Substance: ALBUTEROL
  10. ADVAIR DISKUS [Suspect]
     Active Substance: FLUTICASONE PROPIONATE\SALMETEROL XINAFOATE
     Indication: CHRONIC OBSTRUCTIVE PULMONARY DISEASE
     Dosage: 1 PUFF(S), BID
     Route: 055
     Dates: start: 2006
  11. VENTOLIN [Concomitant]
     Active Substance: ALBUTEROL SULFATE
  12. FEXOFENADINE HYDROCHLORIDE. [Concomitant]
     Active Substance: FEXOFENADINE HYDROCHLORIDE
  13. NAPROXEN. [Suspect]
     Active Substance: NAPROXEN
  14. OMEPRAZOLE. [Concomitant]
     Active Substance: OMEPRAZOLE
  15. ADVAIR DISKUS [Suspect]
     Active Substance: FLUTICASONE PROPIONATE\SALMETEROL XINAFOATE
     Dosage: 1 PUFF(S), BID
  16. ASPIRIN. [Concomitant]
     Active Substance: ASPIRIN
  17. PRESERVISION [Concomitant]
     Active Substance: MINERALS\VITAMINS
  18. REFRESH P.M. [Concomitant]
     Active Substance: MINERAL OIL\PETROLATUM
  19. ALBUTEROL SULFATE AND IPRATROPIUM BROMIDE [Concomitant]
     Active Substance: ALBUTEROL SULFATE\IPRATROPIUM BROMIDE
  20. MECLIZINE HYDROCHLORIDE. [Concomitant]
     Active Substance: MECLIZINE HYDROCHLORIDE

REACTIONS (22)
  - Drug ineffective [Unknown]
  - Optic ischaemic neuropathy [Unknown]
  - Neovascular age-related macular degeneration [Recovering/Resolving]
  - Vitreous detachment [Unknown]
  - Hypertension [Unknown]
  - Vision blurred [Unknown]
  - Dry eye [Unknown]
  - Dyspnoea [Unknown]
  - Overdose [Unknown]
  - Drug hypersensitivity [Unknown]
  - Product quality issue [Unknown]
  - Macular oedema [Recovered/Resolved]
  - Insomnia [Unknown]
  - Eye disorder [Unknown]
  - Photopsia [Unknown]
  - Blindness [Unknown]
  - Dry age-related macular degeneration [Recovering/Resolving]
  - Blepharochalasis [Unknown]
  - Eye operation [Unknown]
  - Oral discomfort [Unknown]
  - Adverse event [Recovered/Resolved]
  - Visual impairment [Recovering/Resolving]

NARRATIVE: CASE EVENT DATE: 2012
